FAERS Safety Report 23701055 (Version 2)
Quarter: 2024Q2

REPORT INFORMATION
  Report Type: Spontaneous
  Country: US (occurrence: US)
  Receive Date: 20240403
  Receipt Date: 20240410
  Transmission Date: 20240715
  Serious: Yes (Hospitalization, Other)
  Sender: FDA-Public Use
  Company Number: US-MLMSERVICE-20240314-4884380-1

PATIENT
  Age: 4 Decade
  Sex: Female
  Weight: 73.5 kg

DRUGS (25)
  1. BINIMETINIB [Suspect]
     Active Substance: BINIMETINIB
     Indication: Malignant melanoma stage IV
     Dosage: 30 MILLIGRAM, BID
     Route: 065
     Dates: start: 20221105, end: 20230322
  2. BINIMETINIB [Suspect]
     Active Substance: BINIMETINIB
     Indication: Metastatic malignant melanoma
     Dosage: 30 MILLIGRAM, BID
     Route: 065
  3. BINIMETINIB [Suspect]
     Active Substance: BINIMETINIB
     Indication: Metastases to lung
     Dosage: 45 MILLIGRAM, BID
     Route: 065
     Dates: start: 20221013, end: 20221027
  4. BINIMETINIB [Suspect]
     Active Substance: BINIMETINIB
     Indication: Metastases to skin
     Dosage: 45 MILLIGRAM, BID
     Route: 048
     Dates: start: 20220401, end: 20220913
  5. BINIMETINIB [Suspect]
     Active Substance: BINIMETINIB
     Indication: Metastases to liver
  6. BINIMETINIB [Suspect]
     Active Substance: BINIMETINIB
     Indication: Metastases to lymph nodes
  7. CEFTRIAXONE [Suspect]
     Active Substance: CEFTRIAXONE\CEFTRIAXONE SODIUM
     Indication: Streptococcal endocarditis
     Dosage: UNK
     Route: 065
     Dates: start: 2022, end: 202209
  8. ENCORAFENIB [Suspect]
     Active Substance: ENCORAFENIB
     Indication: Metastases to lymph nodes
     Dosage: 300 MILLIGRAM, QD
     Route: 065
  9. ENCORAFENIB [Suspect]
     Active Substance: ENCORAFENIB
     Indication: Metastases to skin
     Dosage: 300 MILLIGRAM, QD
     Route: 065
     Dates: start: 20221105, end: 20230322
  10. ENCORAFENIB [Suspect]
     Active Substance: ENCORAFENIB
     Indication: Metastases to lung
     Dosage: 450 MILLIGRAM, QD
     Route: 065
     Dates: start: 20221013, end: 20221027
  11. ENCORAFENIB [Suspect]
     Active Substance: ENCORAFENIB
     Indication: Malignant melanoma stage IV
     Dosage: 450 MILLIGRAM
     Route: 048
     Dates: start: 20220401, end: 20220913
  12. ENCORAFENIB [Suspect]
     Active Substance: ENCORAFENIB
     Indication: Metastases to liver
  13. ENCORAFENIB [Suspect]
     Active Substance: ENCORAFENIB
     Indication: Metastatic malignant melanoma
  14. IPILIMUMAB [Suspect]
     Active Substance: IPILIMUMAB
     Indication: Metastatic malignant melanoma
     Dosage: 3 MILLIGRAM PER LITRE, ONE CYCLE
     Route: 042
     Dates: start: 20220211, end: 20220211
  15. IPILIMUMAB [Suspect]
     Active Substance: IPILIMUMAB
     Indication: Malignant melanoma stage IV
  16. IPILIMUMAB [Suspect]
     Active Substance: IPILIMUMAB
     Indication: Metastases to liver
  17. IPILIMUMAB [Suspect]
     Active Substance: IPILIMUMAB
     Indication: Metastases to lung
  18. IPILIMUMAB [Suspect]
     Active Substance: IPILIMUMAB
     Indication: Metastases to lymph nodes
  19. IPILIMUMAB [Suspect]
     Active Substance: IPILIMUMAB
     Indication: Metastases to skin
  20. NIVOLUMAB [Suspect]
     Active Substance: NIVOLUMAB
     Indication: Metastatic malignant melanoma
     Dosage: 1 MILLIGRAM PER LITRE, ONE CYCLE
     Route: 042
     Dates: start: 20220211, end: 20220211
  21. NIVOLUMAB [Suspect]
     Active Substance: NIVOLUMAB
     Indication: Malignant melanoma stage IV
  22. NIVOLUMAB [Suspect]
     Active Substance: NIVOLUMAB
     Indication: Metastases to liver
  23. NIVOLUMAB [Suspect]
     Active Substance: NIVOLUMAB
     Indication: Metastases to lung
  24. NIVOLUMAB [Suspect]
     Active Substance: NIVOLUMAB
     Indication: Metastases to lymph nodes
  25. NIVOLUMAB [Suspect]
     Active Substance: NIVOLUMAB
     Indication: Metastases to skin

REACTIONS (1)
  - Acute febrile neutrophilic dermatosis [Recovered/Resolved]

NARRATIVE: CASE EVENT DATE: 20220913
